FAERS Safety Report 9158621 (Version 1)
Quarter: 2013Q1

REPORT INFORMATION
  Report Type: Spontaneous
  Country: US (occurrence: US)
  Receive Date: 20130312
  Receipt Date: 20130312
  Transmission Date: 20140127
  Serious: Yes (Other)
  Sender: FDA-Public Use
  Company Number: GXBR2013US000708

PATIENT
  Age: 2 Year
  Sex: Female

DRUGS (2)
  1. AMOXICILLIN+CLAVULANATE [Suspect]
     Indication: CONJUNCTIVITIS
     Dosage: 4 MG, BID
     Dates: start: 20130227, end: 20130301
  2. POLYMYXIN B [Concomitant]
     Indication: CONJUNCTIVITIS
     Dosage: UNK DF, UNK

REACTIONS (4)
  - Febrile convulsion [Recovered/Resolved]
  - Hyperpyrexia [Recovering/Resolving]
  - Diarrhoea [Recovered/Resolved]
  - Rash [Recovered/Resolved]
